FAERS Safety Report 7425406-8 (Version None)
Quarter: 2011Q2

REPORT INFORMATION
  Report Type: 
  Country: None (occurrence: None)
  Receive Date: 20110415
  Receipt Date: 20110415
  Transmission Date: 20111010
  Serious: No
  Sender: FDA-Public Use
  Company Number: None

PATIENT
  Age: 39 Year
  Sex: Male
  Weight: 68.9467 kg

DRUGS (1)
  1. LOTEMAX [Suspect]
     Indication: KERATOMILEUSIS
     Dosage: 1 DROP 3X DAILY OPHTHALMIC
     Route: 047
     Dates: start: 20110413, end: 20110414

REACTIONS (1)
  - BLEPHAROSPASM [None]
